FAERS Safety Report 7909487-0 (Version None)
Quarter: 2011Q4

REPORT INFORMATION
  Report Type: 
  Country: None (occurrence: None)
  Receive Date: 20111111
  Receipt Date: 20111031
  Transmission Date: 20120403
  Serious: Yes (Other)
  Sender: FDA-Public Use
  Company Number: US-BRISTOL-MYERS SQUIBB COMPANY-16206310

PATIENT
  Age: 41 Year
  Sex: Female

DRUGS (5)
  1. ATAZANAVIR [Interacting]
     Indication: HIV INFECTION
  2. RITONAVIR [Interacting]
     Indication: HIV INFECTION
  3. TRIAMCINOLONE ACETONIDE [Interacting]
     Route: 030
  4. TENOFOVIR DISOPROXIL FUMARATE [Suspect]
     Indication: HIV INFECTION
  5. LAMIVUDINE (EPIVIR HBV) [Suspect]
     Indication: HIV INFECTION

REACTIONS (4)
  - DERMATITIS [None]
  - DRUG INTERACTION [None]
  - SECONDARY ADRENOCORTICAL INSUFFICIENCY [None]
  - CUSHING'S SYNDROME [None]
